FAERS Safety Report 9897603 (Version 2)
Quarter: 2014Q1

REPORT INFORMATION
  Report Type: Report from Study
  Country: ES (occurrence: ES)
  Receive Date: 20140214
  Receipt Date: 20140214
  Transmission Date: 20141002
  Serious: Yes (Hospitalization)
  Sender: FDA-Public Use
  Company Number: ES-ASTELLAS-2013EU001392

PATIENT
  Sex: Male

DRUGS (5)
  1. TACROLIMUS MR4 CAPSULES [Suspect]
     Indication: RENAL TRANSPLANT
     Dosage: UNK
     Route: 048
  2. OMEPRAZOLE [Interacting]
     Dosage: UNK
     Route: 065
  3. BASILIXIMAB [Concomitant]
     Indication: IMMUNOSUPPRESSION
     Dosage: UNK
     Route: 065
  4. CORTICOSTEROID NOS [Concomitant]
     Indication: IMMUNOSUPPRESSION
     Dosage: UNK
     Route: 065
  5. MYCOPHENOLATE MOFETIL [Concomitant]
     Indication: IMMUNOSUPPRESSION
     Dosage: UNK
     Route: 065

REACTIONS (6)
  - Drug interaction [Unknown]
  - Immunosuppressant drug level increased [Unknown]
  - Complications of transplanted kidney [Unknown]
  - Renal tubular necrosis [Recovered/Resolved with Sequelae]
  - Focal segmental glomerulosclerosis [Unknown]
  - Renal transplant failure [Unknown]
